FAERS Safety Report 18639903 (Version 1)
Quarter: 2020Q4

REPORT INFORMATION
  Report Type: Spontaneous
  Country: US (occurrence: US)
  Receive Date: 20201220
  Receipt Date: 20201220
  Transmission Date: 20210114
  Serious: No
  Sender: FDA-Public Use
  Company Number: US-PACIRA-201900430

PATIENT

DRUGS (2)
  1. 0.5 BUPI PLAIN (BUPIVACAINE HYDROCHLORIDE) [Suspect]
     Active Substance: BUPIVACAINE HYDROCHLORIDE
     Indication: NERVE BLOCK
     Dosage: 10 ML AND 20 ML OF EXPAREL
     Route: 065
  2. EXPAREL [Suspect]
     Active Substance: BUPIVACAINE
     Indication: NERVE BLOCK
     Dosage: 20 ML AND 10 ML OF 0.5 BUPIVACAINE PLAIN
     Route: 065

REACTIONS (2)
  - Therapeutic product effect decreased [Unknown]
  - No adverse event [Unknown]
